FAERS Safety Report 23657607 (Version 1)
Quarter: 2024Q1

REPORT INFORMATION
  Report Type: Spontaneous
  Country: US (occurrence: None)
  Receive Date: 20240320
  Receipt Date: 20240320
  Transmission Date: 20240410
  Serious: Yes (Other)
  Sender: FDA-Public Use
  Company Number: None

PATIENT
  Age: 20 Year
  Sex: Female
  Weight: 99.3 kg

DRUGS (10)
  1. INFED [Suspect]
     Active Substance: IRON DEXTRAN
     Indication: Iron deficiency anaemia
     Dosage: FREQUENCY : ONCE;?
     Route: 042
     Dates: start: 20240318
  2. AMITRIPTYLINE [Concomitant]
     Active Substance: AMITRIPTYLINE
  3. AMLODIPINE [Concomitant]
     Active Substance: AMLODIPINE BESYLATE
  4. FAMOTIDINE [Concomitant]
     Active Substance: FAMOTIDINE
  5. FERROUS SULFATE [Concomitant]
     Active Substance: FERROUS SULFATE
  6. FLUTICASONE [Concomitant]
     Active Substance: FLUTICASONE
  7. HYDROCHLOROTHIAZIDE [Concomitant]
     Active Substance: HYDROCHLOROTHIAZIDE
  8. HYDROXYZINE [Concomitant]
     Active Substance: HYDROXYZINE HYDROCHLORIDE
  9. MEDROXYPROGESTERONE [Concomitant]
     Active Substance: MEDROXYPROGESTERONE
  10. PANTOPRAZOLE [Concomitant]
     Active Substance: PANTOPRAZOLE

REACTIONS (3)
  - Flushing [None]
  - Dyspepsia [None]
  - Infusion related reaction [None]

NARRATIVE: CASE EVENT DATE: 20240318
